FAERS Safety Report 12527401 (Version 1)
Quarter: 2016Q3

REPORT INFORMATION
  Report Type: Spontaneous
  Country: US (occurrence: US)
  Receive Date: 20160705
  Receipt Date: 20160705
  Transmission Date: 20161109
  Serious: Yes (Hospitalization)
  Sender: FDA-Public Use
  Company Number: US-PFIZER INC-2016314181

PATIENT

DRUGS (1)
  1. PROCARDIA [Suspect]
     Active Substance: NIFEDIPINE

REACTIONS (4)
  - Heart rate increased [Unknown]
  - Cardiac fibrillation [Unknown]
  - Chest pain [Unknown]
  - Cardiac disorder [Unknown]
